FAERS Safety Report 9335593 (Version 2)
Quarter: 2013Q2

REPORT INFORMATION
  Report Type: Spontaneous
  Country: ES (occurrence: ES)
  Receive Date: 20130605
  Receipt Date: 20130612
  Transmission Date: 20140414
  Serious: Yes (Other)
  Sender: FDA-Public Use
  Company Number: ES-009507513-1305ESP017508

PATIENT
  Age: 57 Year
  Sex: Male
  Weight: 85 kg

DRUGS (4)
  1. TEMODAL [Suspect]
     Indication: CHEMOTHERAPY
     Dosage: 45 DAYS CHEMOTHERAPY, RESTING PERIOD OF 28 DAYS AND A NEW CYCLE OF 5 DAYS.
     Route: 048
     Dates: start: 2012, end: 2012
  2. AVASTIN (BEVACIZUMAB) [Concomitant]
     Dosage: UNK
     Dates: start: 201204, end: 2013
  3. FOTEMUSTINE [Concomitant]
     Dosage: UNK
     Dates: start: 2013, end: 201303
  4. IRINOTECAN HYDROCHLORIDE [Concomitant]
     Dosage: UNK
     Dates: start: 201204

REACTIONS (13)
  - Neoplasm progression [Unknown]
  - Central nervous system lesion [Unknown]
  - Central nervous system lesion [Unknown]
  - Pancytopenia [Unknown]
  - Thrombocytopenia [Recovered/Resolved]
  - Alexia [Unknown]
  - Hemianopia homonymous [Unknown]
  - Nausea [Unknown]
  - Drug ineffective [Unknown]
  - Headache [Unknown]
  - Drug ineffective [Unknown]
  - Neutropenia [Unknown]
  - Fatigue [Unknown]
